FAERS Safety Report 5951468-0 (Version None)
Quarter: 2008Q4

REPORT INFORMATION
  Report Type: 
  Country: None (occurrence: None)
  Receive Date: 20081111
  Receipt Date: 20081111
  Transmission Date: 20090506
  Serious: Yes (Hospitalization)
  Sender: FDA-Public Use
  Company Number: None

PATIENT
  Age: 51 Year
  Sex: Female
  Weight: 65.7716 kg

DRUGS (1)
  1. DILANTIN [Suspect]
     Indication: CONVULSION
     Dosage: 200MG AM PO; 300MG PA PO
     Route: 048
     Dates: start: 19910202, end: 20081110

REACTIONS (5)
  - CONFUSIONAL STATE [None]
  - DIZZINESS [None]
  - DRUG TOXICITY [None]
  - DYSARTHRIA [None]
  - NYSTAGMUS [None]
